FAERS Safety Report 11060518 (Version 4)
Quarter: 2016Q2

REPORT INFORMATION
  Report Type: Report from Study
  Country: RU (occurrence: RU)
  Receive Date: 20150423
  Receipt Date: 20160610
  Transmission Date: 20160815
  Serious: Yes (Hospitalization)
  Sender: FDA-Public Use
  Company Number: RU-EISAI MEDICAL RESEARCH-EC-2015-006197

PATIENT
  Age: 63 Year
  Sex: Male
  Weight: 77 kg

DRUGS (9)
  1. LENVATINIB [Suspect]
     Active Substance: LENVATINIB
     Indication: HEPATOCELLULAR CARCINOMA
     Route: 048
     Dates: start: 20150317, end: 20150330
  2. FENSPIRIDE [Concomitant]
     Active Substance: FENSPIRIDE
  3. LENVATINIB [Suspect]
     Active Substance: LENVATINIB
     Route: 048
     Dates: start: 20150331, end: 20150412
  4. URSODEOXYCHOLIC ACID [Concomitant]
     Active Substance: URSODIOL
  5. ETAMSYLATE [Concomitant]
     Active Substance: ETHAMSYLATE
  6. ENALAPRIL [Concomitant]
     Active Substance: ENALAPRIL
  7. DUPHALAC [Concomitant]
     Active Substance: LACTULOSE
  8. LENVATINIB [Suspect]
     Active Substance: LENVATINIB
     Route: 048
     Dates: start: 20150428, end: 20150630
  9. OMEPRAZOL [Concomitant]
     Active Substance: OMEPRAZOLE

REACTIONS (1)
  - Necrotising bronchiolitis [Recovered/Resolved]

NARRATIVE: CASE EVENT DATE: 20150402
